FAERS Safety Report 17021690 (Version 2)
Quarter: 2020Q1

REPORT INFORMATION
  Report Type: Spontaneous
  Country: IE (occurrence: IE)
  Receive Date: 20191112
  Receipt Date: 20200318
  Transmission Date: 20200409
  Serious: Yes (Other)
  Sender: FDA-Public Use
  Company Number: NVSC2019IE031419

PATIENT
  Age: 86 Year
  Sex: Female

DRUGS (1)
  1. COSENTYX [Suspect]
     Active Substance: SECUKINUMAB
     Indication: PRODUCT USED FOR UNKNOWN INDICATION
     Dosage: UNK UNK, UNKNOWN
     Route: 065
     Dates: start: 20191031

REACTIONS (4)
  - Dizziness [Not Recovered/Not Resolved]
  - Paraesthesia [Unknown]
  - Paralysis [Unknown]
  - Aphonia [Unknown]

NARRATIVE: CASE EVENT DATE: 20191031
